FAERS Safety Report 4652116-2 (Version None)
Quarter: 2005Q2

REPORT INFORMATION
  Report Type: 
  Country: None (occurrence: None)
  Receive Date: 20050504
  Receipt Date: 20040702
  Transmission Date: 20051028
  Serious: Yes (Hospitalization)
  Sender: FDA-Public Use
  Company Number: US-AMGEN-US084105

PATIENT
  Age: 21 Year
  Sex: Female

DRUGS (5)
  1. ENBREL [Suspect]
     Indication: PSORIATIC ARTHROPATHY
     Route: 058
  2. LAMOTRIGINE [Concomitant]
  3. SULFASALAZINE [Concomitant]
  4. SERTRALINE HCL [Concomitant]
  5. RISPERIDONE [Concomitant]

REACTIONS (1)
  - MANIA [None]
